FAERS Safety Report 8417964-1 (Version None)
Quarter: 2012Q2

REPORT INFORMATION
  Report Type: 
  Country: None (occurrence: None)
  Receive Date: 20120531
  Receipt Date: 20120531
  Transmission Date: 20120825
  Serious: Yes (Life-Threatening, Hospitalization)
  Sender: FDA-Public Use
  Company Number: None

PATIENT
  Age: 86 Year
  Sex: Female
  Weight: 57 kg

DRUGS (2)
  1. DABIGATRAN 150 MG BOEHRINGER INGELHEIM [Suspect]
     Indication: ATRIAL FIBRILLATION
     Dosage: 150MG BID PO
     Route: 048
     Dates: start: 20110501, end: 20120511
  2. DABIGATRAN 150 MG BOEHRINGER INGELHEIM [Suspect]
     Indication: CEREBROVASCULAR ACCIDENT PROPHYLAXIS
     Dosage: 150MG BID PO
     Route: 048
     Dates: start: 20110501, end: 20120511

REACTIONS (6)
  - ASTHENIA [None]
  - DIZZINESS POSTURAL [None]
  - DYSPNOEA EXERTIONAL [None]
  - ANGINA PECTORIS [None]
  - RECTAL HAEMORRHAGE [None]
  - FATIGUE [None]
